FAERS Safety Report 8581254-7 (Version None)
Quarter: 2012Q3

REPORT INFORMATION
  Report Type: 
  Country: None (occurrence: None)
  Receive Date: 20120809
  Receipt Date: 20120803
  Transmission Date: 20120928
  Serious: Yes (Hospitalization)
  Sender: FDA-Public Use
  Company Number: PHHY2012JP063914

PATIENT
  Age: 4 Year
  Sex: Male

DRUGS (8)
  1. NEORAL [Suspect]
     Dosage: 4 MG/KG, UNK
     Route: 048
  2. CLARITHROMYCIN [Concomitant]
  3. NEORAL [Suspect]
     Dosage: 5 MG/KG, UNK
     Route: 048
  4. STEROIDS NOS [Concomitant]
  5. NEORAL [Suspect]
     Indication: PUSTULAR PSORIASIS
     Dosage: 3 MG/KG, UNK
     Route: 048
  6. NEORAL [Suspect]
     Dosage: 5 MG/KG, UNK
     Route: 048
  7. NEORAL [Suspect]
     Dosage: 3 MG/KG, UNK
     Route: 048
  8. AZITHROMYCIN [Concomitant]
     Route: 048

REACTIONS (5)
  - ERYTHEMA [None]
  - RASH PUSTULAR [None]
  - INFLAMMATION [None]
  - HYPERTRICHOSIS [None]
  - PYREXIA [None]
